FAERS Safety Report 7684052-1 (Version None)
Quarter: 2011Q3

REPORT INFORMATION
  Report Type: 
  Country: None (occurrence: None)
  Receive Date: 20110815
  Receipt Date: 20110808
  Transmission Date: 20111222
  Serious: Yes (Hospitalization)
  Sender: FDA-Public Use
  Company Number: JP-AMGEN-JPNCT2011037302

PATIENT
  Age: 73 Year
  Sex: Male
  Weight: 35 kg

DRUGS (14)
  1. ANTEBATE [Concomitant]
     Dosage: UNK
     Route: 062
  2. FLUOROURACIL [Suspect]
     Route: 041
     Dates: start: 20100901, end: 20100930
  3. EMEND [Concomitant]
     Dosage: UNK
     Route: 048
  4. WARFARIN SODIUM [Concomitant]
     Indication: CEREBRAL INFARCTION
     Route: 048
  5. IRINOTECAN HCL [Suspect]
     Indication: COLORECTAL CANCER
     Route: 041
     Dates: start: 20100901, end: 20100930
  6. HIRUDOID [Concomitant]
     Dosage: UNK
     Route: 062
  7. LOCOID [Concomitant]
     Dosage: UNK
     Route: 062
  8. RAMELTEON [Concomitant]
     Dosage: UNK
     Route: 048
  9. PANITUMUMAB [Suspect]
     Indication: COLORECTAL CANCER
     Dosage: 6 MG/KG, Q2WK
     Route: 041
     Dates: start: 20100901, end: 20100901
  10. PANITUMUMAB [Suspect]
     Dosage: 6 MG/KG, Q2WK
     Route: 041
     Dates: start: 20100928, end: 20100928
  11. DECADRON [Concomitant]
     Dosage: UNK
     Route: 048
  12. FLUOROURACIL [Suspect]
     Indication: COLORECTAL CANCER
     Route: 040
     Dates: start: 20100901, end: 20100930
  13. DIART [Concomitant]
     Route: 048
  14. LEUCOVORIN CALCIUM [Suspect]
     Indication: COLORECTAL CANCER
     Route: 041
     Dates: start: 20100901, end: 20100930

REACTIONS (1)
  - CEREBRAL INFARCTION [None]
